FAERS Safety Report 24947152 (Version 1)
Quarter: 2025Q1

REPORT INFORMATION
  Report Type: Spontaneous
  Country: US (occurrence: US)
  Receive Date: 20250210
  Receipt Date: 20250210
  Transmission Date: 20250408
  Serious: No
  Sender: ALKEM
  Company Number: US-ALKEM LABORATORIES LIMITED-US-ALKEM-2024-19189

PATIENT
  Sex: Male
  Weight: 90.703 kg

DRUGS (2)
  1. FINASTERIDE [Suspect]
     Active Substance: FINASTERIDE
     Indication: Alopecia
     Dosage: 1 MILLIGRAM, QD
     Route: 048
  2. FINASTERIDE [Suspect]
     Active Substance: FINASTERIDE
     Dosage: 1 MILLIGRAM, QD
     Route: 061

REACTIONS (3)
  - Blood testosterone decreased [Recovered/Resolved]
  - Asthenia [Recovered/Resolved]
  - Loss of libido [Recovered/Resolved]
